FAERS Safety Report 4400994-4 (Version None)
Quarter: 2004Q3

REPORT INFORMATION
  Report Type: 
  Country: None (occurrence: None)
  Receive Date: 20040907
  Receipt Date: 20030910
  Transmission Date: 20050211
  Serious: Yes (Hospitalization)
  Sender: FDA-Public Use
  Company Number: US-BRISTOL-MYERS SQUIBB COMPANY-12379848

PATIENT
  Age: 77 Year
  Sex: Male
  Weight: 78 kg

DRUGS (2)
  1. COUMADIN [Suspect]
     Indication: CARDIOVASCULAR DISORDER
     Route: 048
  2. FOSAMAX [Concomitant]

REACTIONS (2)
  - ANAEMIA [None]
  - HAEMORRHAGE [None]
